FAERS Safety Report 6161259-6 (Version None)
Quarter: 2009Q2

REPORT INFORMATION
  Report Type: 
  Country: None (occurrence: None)
  Receive Date: 20090417
  Receipt Date: 20090417
  Transmission Date: 20091009
  Serious: Yes (Other)
  Sender: FDA-Public Use
  Company Number: None

PATIENT
  Age: 54 Year
  Sex: Female

DRUGS (3)
  1. SEROQUEL [Suspect]
  2. CYMBALTA [Suspect]
  3. ABILIFY [Suspect]

REACTIONS (4)
  - BLADDER DISORDER [None]
  - BLINDNESS TRANSIENT [None]
  - EYE PAIN [None]
  - VISUAL IMPAIRMENT [None]
